FAERS Safety Report 11550260 (Version 1)
Quarter: 2015Q3

REPORT INFORMATION
  Report Type: Report from Study
  Country: JP (occurrence: JP)
  Receive Date: 20150924
  Receipt Date: 20150924
  Transmission Date: 20151125
  Serious: Yes (Hospitalization, Other)
  Sender: FDA-Public Use
  Company Number: JP-GILEAD-2015-0173065

PATIENT
  Age: 4 Year
  Sex: Male

DRUGS (13)
  1. AMBRISENTAN [Suspect]
     Active Substance: AMBRISENTAN
     Indication: PULMONARY HYPERTENSION
     Dosage: 2 MG, QD
     Route: 048
     Dates: start: 20120710, end: 20141021
  2. WARFARIN [Concomitant]
     Active Substance: WARFARIN
     Dosage: UNK
  3. PIMOBENDAN [Concomitant]
     Active Substance: PIMOBENDAN
     Dosage: UNK
  4. ADCIRCA [Concomitant]
     Active Substance: TADALAFIL
     Indication: PULMONARY HYPERTENSION
     Dosage: UNK
  5. POTASSIUM GLUCONATE [Concomitant]
     Active Substance: POTASSIUM GLUCONATE
     Dosage: UNK
  6. EXCEGRAN [Concomitant]
     Active Substance: ZONISAMIDE
     Dosage: UNK
  7. CAPTOPRIL. [Concomitant]
     Active Substance: CAPTOPRIL
     Dosage: UNK
  8. ARTIST [Concomitant]
     Active Substance: CARVEDILOL
     Dosage: UNK
  9. ALDACTONE A [Concomitant]
     Active Substance: SPIRONOLACTONE
     Dosage: UNK
  10. MAGNESIUM OXIDE. [Concomitant]
     Active Substance: MAGNESIUM OXIDE
     Dosage: UNK
  11. FUROSEMIDE. [Concomitant]
     Active Substance: FUROSEMIDE
     Dosage: UNK
  12. SAMSCA [Concomitant]
     Active Substance: TOLVAPTAN
     Dosage: UNK
  13. CITRIC ACID MONOHYDRATE [Concomitant]
     Active Substance: CITRIC ACID MONOHYDRATE
     Dosage: UNK

REACTIONS (3)
  - Off label use [Unknown]
  - Pleural effusion [Recovered/Resolved]
  - Pulmonary haemorrhage [Recovered/Resolved]

NARRATIVE: CASE EVENT DATE: 20140917
